FAERS Safety Report 9696073 (Version 1)
Quarter: 2013Q4

REPORT INFORMATION
  Report Type: Report from Study
  Country: US (occurrence: US)
  Receive Date: 20131119
  Receipt Date: 20131119
  Transmission Date: 20140711
  Serious: Yes (Hospitalization, Other)
  Sender: FDA-Public Use
  Company Number: US-GLAXOSMITHKLINE-A1050273A

PATIENT
  Age: 44 Year
  Sex: Female
  Weight: 83 kg

DRUGS (16)
  1. MELPHALAN [Suspect]
     Indication: AMYLOIDOSIS
     Dosage: 140MGM2 CYCLIC
     Route: 042
     Dates: start: 20131001, end: 20131002
  2. VELCADE [Suspect]
     Indication: AMYLOIDOSIS
     Dosage: 1MGM2 CYCLIC
     Route: 042
     Dates: start: 20130920, end: 20131007
  3. DEXAMETHASONE [Suspect]
     Indication: AMYLOIDOSIS
  4. LEVOTHROID [Concomitant]
  5. VITAMIN D [Concomitant]
  6. LEVAQUIN [Concomitant]
  7. PROCHLORPERAZINE [Concomitant]
  8. PREVIDENT [Concomitant]
  9. PANTOPRAZOLE [Concomitant]
  10. MIDODRINE [Concomitant]
  11. ACYCLOVIR [Concomitant]
  12. ATIVAN [Concomitant]
  13. ARANESP [Concomitant]
  14. CORTEF [Concomitant]
  15. DIFLUCAN [Concomitant]
  16. DIURETICS [Concomitant]

REACTIONS (3)
  - Presyncope [Recovering/Resolving]
  - Pyrexia [Recovered/Resolved]
  - Splenic rupture [Recovered/Resolved]
